FAERS Safety Report 24996452 (Version 1)
Quarter: 2025Q1

REPORT INFORMATION
  Report Type: Spontaneous
  Country: JP (occurrence: JP)
  Receive Date: 20250221
  Receipt Date: 20250221
  Transmission Date: 20250409
  Serious: Yes (Death, Other)
  Sender: PFIZER
  Company Number: JP-PFIZER INC-PV202500019559

PATIENT
  Age: 63 Year
  Sex: Male

DRUGS (10)
  1. HYDROCORTISONE SODIUM SUCCINATE [Suspect]
     Active Substance: HYDROCORTISONE SODIUM SUCCINATE
     Indication: Shock
     Dosage: 200 MG, DAILY
  2. VASOPRESSIN [Suspect]
     Active Substance: VASOPRESSIN
     Indication: Shock
  3. NOREPINEPHRINE BITARTRATE [Suspect]
     Active Substance: NOREPINEPHRINE BITARTRATE
     Indication: Shock
  4. CLINDAMYCIN PHOSPHATE [Concomitant]
     Active Substance: CLINDAMYCIN PHOSPHATE
     Indication: Disseminated intravascular coagulation
     Dosage: 600 MG, 4X/DAY
  5. CLINDAMYCIN PHOSPHATE [Concomitant]
     Active Substance: CLINDAMYCIN PHOSPHATE
     Indication: Multiple organ dysfunction syndrome
  6. MEROPENEM [Concomitant]
     Active Substance: MEROPENEM
     Indication: Multiple organ dysfunction syndrome
     Dosage: 1 G, 2X/DAY
  7. MEROPENEM [Concomitant]
     Active Substance: MEROPENEM
     Indication: Disseminated intravascular coagulation
  8. VANCOMYCIN [Concomitant]
     Active Substance: VANCOMYCIN
     Indication: Multiple organ dysfunction syndrome
     Dosage: 1 G, 1X/DAY
  9. VANCOMYCIN [Concomitant]
     Active Substance: VANCOMYCIN
     Indication: Disseminated intravascular coagulation
  10. MICAFUNGIN [Concomitant]
     Active Substance: MICAFUNGIN SODIUM
     Indication: Blood beta-D-glucan positive
     Dosage: 100 MG, DAILY

REACTIONS (3)
  - Drug ineffective [Fatal]
  - Drug ineffective for unapproved indication [Fatal]
  - Off label use [Fatal]
